FAERS Safety Report 22655292 (Version 5)
Quarter: 2025Q3

REPORT INFORMATION
  Report Type: Report from Study
  Country: US (occurrence: US)
  Receive Date: 20230629
  Receipt Date: 20250919
  Transmission Date: 20251021
  Serious: Yes (Other)
  Sender: TAKEDA
  Company Number: US-TAKEDA-2023TUS063461

PATIENT
  Age: 75 Year
  Sex: Female

DRUGS (2)
  1. HUMAN IMMUNOGLOBULIN G [Suspect]
     Active Substance: HUMAN IMMUNOGLOBULIN G
     Indication: Hypogammaglobulinaemia
  2. HUMAN IMMUNOGLOBULIN G [Suspect]
     Active Substance: HUMAN IMMUNOGLOBULIN G
     Indication: Primary immunodeficiency syndrome
     Dosage: UNK UNK, Q6WEEKS

REACTIONS (8)
  - Chronic lymphocytic leukaemia [Unknown]
  - Pulmonary hypertension [Recovering/Resolving]
  - Cerebrovascular accident [Unknown]
  - Tooth disorder [Unknown]
  - Fatigue [Unknown]
  - Dizziness [Recovered/Resolved]
  - Tachycardia [Unknown]
  - Inappropriate schedule of product administration [Unknown]

NARRATIVE: CASE EVENT DATE: 20240318
